FAERS Safety Report 18428908 (Version 2)
Quarter: 2020Q4

REPORT INFORMATION
  Report Type: Other
  Country: US (occurrence: US)
  Receive Date: 20201026
  Receipt Date: 20201125
  Transmission Date: 20210114
  Serious: Yes (Other)
  Sender: FDA-Public Use
  Company Number: US-ROCHE-2701487

PATIENT
  Age: 77 Year
  Sex: Female

DRUGS (3)
  1. ACTILYSE [Suspect]
     Active Substance: ALTEPLASE
     Indication: ISCHAEMIC STROKE
     Route: 042
  2. ACTILYSE [Suspect]
     Active Substance: ALTEPLASE
     Dosage: GIVEN TWICE 88 HOURS DIFFERENCE FROM FIRST DOSE FREQUENCY: 1, FREQUENCY UNIT: 809
     Route: 042
  3. ASPIRIN [ACETYLSALICYLIC ACID] [Concomitant]
     Active Substance: ASPIRIN
     Indication: PRODUCT USED FOR UNKNOWN INDICATION
     Route: 065

REACTIONS (7)
  - Aphasia [Recovered/Resolved]
  - Cerebral haemorrhage [Unknown]
  - Ataxia [Recovered/Resolved]
  - Dysarthria [Recovered/Resolved]
  - Cerebral infarction [Recovered/Resolved]
  - Quadrantanopia [Recovered/Resolved]
  - Cerebral artery embolism [Recovered/Resolved]
